FAERS Safety Report 4342064-X (Version None)
Quarter: 2004Q2

REPORT INFORMATION
  Report Type: 
  Country: None (occurrence: None)
  Receive Date: 20040415
  Receipt Date: 20040405
  Transmission Date: 20050107
  Serious: Yes (Death, Other)
  Sender: FDA-Public Use
  Company Number: 2004017260

PATIENT
  Age: 27 Year
  Sex: Female

DRUGS (3)
  1. GEODON [Suspect]
     Indication: ILL-DEFINED DISORDER
  2. ABILIFY [Concomitant]
  3. LAMICTAL [Concomitant]

REACTIONS (1)
  - SUDDEN DEATH [None]
